FAERS Safety Report 16598265 (Version 4)
Quarter: 2020Q4

REPORT INFORMATION
  Report Type: Report from Study
  Country: JP (occurrence: JP)
  Receive Date: 20190719
  Receipt Date: 20201029
  Transmission Date: 20210113
  Serious: Yes (Hospitalization, Other)
  Sender: FDA-Public Use
  Company Number: JP-ASTELLAS-2019JP008824

PATIENT
  Age: 13 Year
  Sex: Male

DRUGS (25)
  1. VEPESID [Suspect]
     Active Substance: ETOPOSIDE
     Dosage: 150 MG/DAY, UNKNOWN FREQ.
     Route: 042
     Dates: start: 20190218, end: 20190222
  2. MAXIPIME [Concomitant]
     Active Substance: CEFEPIME HYDROCHLORIDE
     Indication: PROPHYLAXIS
     Dosage: 2 G/DAY, UNKNOWN FREQ.
     Route: 065
     Dates: end: 20181223
  3. MINOPHAGEN C                       /00275201/ [Concomitant]
     Indication: ALANINE AMINOTRANSFERASE ABNORMAL
  4. ASP2215 [Suspect]
     Active Substance: GILTERITINIB
     Route: 048
     Dates: start: 20190121, end: 20190217
  5. IDAMYCIN [Suspect]
     Active Substance: IDARUBICIN HYDROCHLORIDE
     Indication: ACUTE MYELOID LEUKAEMIA
     Dosage: 15 MG/DAY, UNKNOWN FREQ.
     Route: 042
     Dates: start: 20181211, end: 20181211
  6. BAKTAR [Concomitant]
     Active Substance: SULFAMETHOXAZOLE\TRIMETHOPRIM
     Indication: PROPHYLAXIS
     Dosage: 4 DF/DAY, UNKNOWN FREQ.
     Route: 048
  7. POLYMIXIN B SULFATE [Concomitant]
     Indication: PRODUCT USED FOR UNKNOWN INDICATION
     Dosage: 3000000 DF/DAY, UNKNOWN FREQ.
     Route: 048
     Dates: end: 20190107
  8. CUBICIN [Concomitant]
     Active Substance: DAPTOMYCIN
     Indication: SEPSIS
     Dosage: UNK UNK, UNKNOWN FREQ.
     Route: 065
  9. ASP2215 [Suspect]
     Active Substance: GILTERITINIB
     Route: 048
     Dates: start: 20190225, end: 20190331
  10. FUNGUARD [Concomitant]
     Active Substance: MICAFUNGIN SODIUM
     Indication: PROPHYLAXIS
     Dosage: 150 MG/DAY, UNKNOWN FREQ.
     Route: 065
     Dates: end: 20190102
  11. MINOMYCIN [Concomitant]
     Active Substance: MINOCYCLINE HYDROCHLORIDE
     Indication: SEPSIS
     Dosage: UNK UNK, UNKNOWN FREQ.
     Route: 065
  12. CYLOCIDE [Suspect]
     Active Substance: CYTARABINE
     Indication: ACUTE MYELOID LEUKAEMIA
     Route: 042
     Dates: start: 20181211, end: 20181213
  13. CYLOCIDE [Suspect]
     Active Substance: CYTARABINE
     Route: 042
     Dates: start: 20190218, end: 20190220
  14. CARBENIN [Concomitant]
     Active Substance: BETAMIPRON\PANIPENEM
     Indication: SEPSIS
     Dosage: UNK UNK, UNKNOWN FREQ.
     Route: 065
  15. DIFLUCAN [Concomitant]
     Active Substance: FLUCONAZOLE
     Indication: PRODUCT USED FOR UNKNOWN INDICATION
     Dosage: UNK UNK, UNKNOWN FREQ.
     Route: 065
  16. ASP2215 [Suspect]
     Active Substance: GILTERITINIB
     Indication: ACUTE MYELOID LEUKAEMIA RECURRENT
     Dosage: 80 MG/DAY, UNKNOWN FREQ.
     Route: 048
     Dates: start: 20181217, end: 20190113
  17. CYLOCIDE [Suspect]
     Active Substance: CYTARABINE
     Route: 042
     Dates: start: 20190115, end: 20190119
  18. MINOPHAGEN C                       /00275201/ [Concomitant]
     Indication: ASPARTATE AMINOTRANSFERASE ABNORMAL
     Dosage: 40 ML/DAY, UNKNOWN FREQ.
     Route: 065
     Dates: start: 20181221, end: 20190102
  19. TEICOPLANIN [Concomitant]
     Active Substance: TEICOPLANIN
     Indication: SEPSIS
     Dosage: UNK UNK, UNKNOWN FREQ.
     Route: 065
  20. TEICOPLANIN [Concomitant]
     Active Substance: TEICOPLANIN
     Dosage: UNK UNK, UNKNOWN FREQ.
     Route: 065
  21. VEPESID [Suspect]
     Active Substance: ETOPOSIDE
     Indication: ACUTE MYELOID LEUKAEMIA
     Dosage: 150 MG/DAY, UNKNOWN FREQ.
     Route: 042
     Dates: start: 20181211, end: 20181215
  22. MITOXANTRONE [Suspect]
     Active Substance: MITOXANTRONE HYDROCHLORIDE
     Indication: ACUTE MYELOID LEUKAEMIA
     Dosage: 7.5 MG/DAY, UNKNOWN FREQ.
     Route: 042
     Dates: start: 20190115, end: 20190117
  23. NEUQUINON [Concomitant]
     Active Substance: DIETARY SUPPLEMENT\UBIDECARENONE
     Indication: PROPHYLAXIS
     Dosage: 30 MG/DAY, UNKNOWN FREQ.
     Route: 048
     Dates: end: 20190402
  24. IDAMYCIN [Suspect]
     Active Substance: IDARUBICIN HYDROCHLORIDE
     Dosage: 15 MG/DAY, UNKNOWN FREQ.
     Route: 042
     Dates: start: 20190218, end: 20190218
  25. FLUCONAZOLE. [Concomitant]
     Active Substance: FLUCONAZOLE
     Indication: PROPHYLAXIS
     Dosage: 200 MG/DAY, UNKNOWN FREQ.
     Route: 048

REACTIONS (10)
  - Aspartate aminotransferase abnormal [Recovering/Resolving]
  - Sepsis [Recovered/Resolved]
  - Sepsis [Recovered/Resolved]
  - Myelosuppression [Recovered/Resolved]
  - Myelosuppression [Recovered/Resolved]
  - Herpes zoster [Recovered/Resolved]
  - Alanine aminotransferase abnormal [Recovering/Resolving]
  - Myelosuppression [Recovered/Resolved]
  - Off label use [Unknown]
  - Product administered to patient of inappropriate age [Unknown]

NARRATIVE: CASE EVENT DATE: 20181215
